FAERS Safety Report 23698411 (Version 1)
Quarter: 2024Q2

REPORT INFORMATION
  Report Type: Spontaneous
  Country: US (occurrence: None)
  Receive Date: 20240401
  Receipt Date: 20240401
  Transmission Date: 20240715
  Serious: No
  Sender: FDA-Public Use
  Company Number: None

PATIENT

DRUGS (2)
  1. ACETIC ACID [Suspect]
     Active Substance: ACETIC ACID
  2. TRICHLOROACETIC ACID [Suspect]
     Active Substance: TRICHLOROACETIC ACID

REACTIONS (4)
  - Wrong product administered [None]
  - Accidental exposure to product [None]
  - Burning sensation [None]
  - Refusal of treatment by patient [None]
